FAERS Safety Report 4999104-4 (Version None)
Quarter: 2006Q1

REPORT INFORMATION
  Report Type: 
  Country: None (occurrence: None)
  Receive Date: 20060315
  Receipt Date: 20051222
  Transmission Date: 20060701
  Serious: Yes (Other)
  Sender: FDA-Public Use
  Company Number: 423284

PATIENT
  Sex: Female

DRUGS (2)
  1. BONIVA [Suspect]
     Dates: start: 20050915
  2. EVISTA [Concomitant]

REACTIONS (2)
  - DIARRHOEA [None]
  - SWELLING [None]
